FAERS Safety Report 8312099-0 (Version None)
Quarter: 2012Q2

REPORT INFORMATION
  Report Type: 
  Country: None (occurrence: None)
  Receive Date: 20120425
  Receipt Date: 20120416
  Transmission Date: 20120825
  Serious: Yes (Hospitalization)
  Sender: FDA-Public Use
  Company Number: FR-ASTRAZENECA-2012SE07821

PATIENT
  Sex: Male
  Weight: 79 kg

DRUGS (7)
  1. QUETIAPINE FUMARATE [Suspect]
     Route: 048
     Dates: start: 20120210, end: 20120213
  2. CLOPIXOL LP [Concomitant]
     Dates: start: 20120202
  3. LOXAPINE HCL [Concomitant]
     Dates: start: 20100101
  4. QUETIAPINE FUMARATE [Suspect]
     Indication: SCHIZOAFFECTIVE DISORDER
     Route: 048
     Dates: start: 20120105, end: 20120106
  5. VALIUM [Concomitant]
     Dates: start: 20100101
  6. DEPAKOTE [Concomitant]
     Dates: start: 20100101
  7. LITHIUM CARBONATE [Concomitant]
     Indication: SCHIZOAFFECTIVE DISORDER
     Dates: start: 20100101

REACTIONS (1)
  - PSYCHIATRIC DECOMPENSATION [None]
